FAERS Safety Report 4538623-1 (Version None)
Quarter: 2004Q4

REPORT INFORMATION
  Report Type: 
  Country: None (occurrence: None)
  Receive Date: 20041227
  Receipt Date: 20041215
  Transmission Date: 20050328
  Serious: Yes (Other)
  Sender: FDA-Public Use
  Company Number: JP-BRISTOL-MYERS SQUIBB COMPANY-12798476

PATIENT
  Age: 23 Year
  Sex: Male

DRUGS (4)
  1. VIDEX EC [Suspect]
     Indication: HIV INFECTION
     Route: 048
     Dates: start: 20030901
  2. RETROVIR [Suspect]
     Indication: HIV INFECTION
     Route: 048
     Dates: start: 20031001
  3. CRIXIVAN [Suspect]
     Indication: HIV INFECTION
     Route: 048
     Dates: start: 20040101
  4. LOPINAVIR + RITONAVIR [Suspect]
     Dates: start: 20031001

REACTIONS (2)
  - HEPATIC FUNCTION ABNORMAL [None]
  - IMMUNE RECONSTITUTION SYNDROME [None]
